FAERS Safety Report 4332702-X (Version None)
Quarter: 2004Q2

REPORT INFORMATION
  Report Type: 
  Country: None (occurrence: None)
  Receive Date: 20040406
  Receipt Date: 20040330
  Transmission Date: 20050107
  Serious: Yes (Other)
  Sender: FDA-Public Use
  Company Number: 200412403US

PATIENT
  Sex: Male

DRUGS (2)
  1. ALLEGRA [Suspect]
     Indication: MULTIPLE ALLERGIES
     Route: 048
  2. EFFEXOR [Concomitant]

REACTIONS (2)
  - AMNESIA [None]
  - DRUG INTOLERANCE [None]
